FAERS Safety Report 8622861-2 (Version None)
Quarter: 2012Q3

REPORT INFORMATION
  Report Type: 
  Country: None (occurrence: None)
  Receive Date: 20120827
  Receipt Date: 20120821
  Transmission Date: 20120928
  Serious: Yes (Other)
  Sender: FDA-Public Use
  Company Number: PHHY2012BR072840

PATIENT
  Sex: Female

DRUGS (5)
  1. METFORMIN HCL [Concomitant]
     Dosage: 850 M, BID
     Route: 048
  2. CALCIUM CARBONATE [Concomitant]
     Dosage: 500 MG, Q12H
     Dates: start: 20120808
  3. LEVOTHYROXINE SODIUM [Concomitant]
     Indication: THYROID DISORDER
     Dosage: 100 MG, QD
     Route: 048
     Dates: start: 20120808
  4. GLIMEPIRIDE [Concomitant]
     Indication: DIABETES MELLITUS
     Dosage: 2 G, QD
     Route: 048
  5. DIOVAN HCT [Suspect]
     Indication: HYPERTENSION
     Dosage: 1 DF, QD
     Route: 048

REACTIONS (1)
  - DIABETES MELLITUS [None]
